FAERS Safety Report 10541791 (Version 2)
Quarter: 2014Q4

REPORT INFORMATION
  Report Type: Spontaneous
  Country: US (occurrence: US)
  Receive Date: 20141024
  Receipt Date: 20141024
  Transmission Date: 20150529
  Serious: Yes (Hospitalization)
  Sender: FDA-Public Use
  Company Number: US-JNJFOC-20140917003

PATIENT
  Age: 82 Year
  Sex: Male
  Weight: 70 kg

DRUGS (7)
  1. AMBIEN [Concomitant]
     Active Substance: ZOLPIDEM TARTRATE
     Indication: INSOMNIA
  2. COD LIVER OIL [Concomitant]
     Active Substance: COD LIVER OIL
     Route: 048
  3. ATIVAN [Concomitant]
     Active Substance: LORAZEPAM
     Route: 048
  4. PRILOSEC [Concomitant]
     Active Substance: OMEPRAZOLE MAGNESIUM
     Route: 048
  5. MULTIVITAMINS [Concomitant]
     Active Substance: VITAMINS
     Route: 048
  6. IMBRUVICA [Suspect]
     Active Substance: IBRUTINIB
     Indication: CHRONIC LYMPHOCYTIC LEUKAEMIA
     Route: 048
     Dates: start: 20140305, end: 20140904
  7. VITAMIN C [Concomitant]
     Active Substance: ASCORBIC ACID

REACTIONS (6)
  - Scapula fracture [Unknown]
  - Contusion [Unknown]
  - Acute kidney injury [Unknown]
  - Disease progression [Unknown]
  - Organising pneumonia [Recovered/Resolved]
  - Fall [Recovered/Resolved]

NARRATIVE: CASE EVENT DATE: 2014
